FAERS Safety Report 23774094 (Version 1)
Quarter: 2024Q2

REPORT INFORMATION
  Report Type: Spontaneous
  Country: IN (occurrence: None)
  Receive Date: 20240423
  Receipt Date: 20240423
  Transmission Date: 20240716
  Serious: Yes (Other)
  Sender: FDA-Public Use
  Company Number: 2024A091190

PATIENT
  Age: 37 Year
  Sex: Male

DRUGS (3)
  1. QUETIAPINE [Suspect]
     Active Substance: QUETIAPINE
     Indication: Depression
     Dosage: 200 MG
     Route: 048
  2. CARBAMAZEPINE [Concomitant]
     Active Substance: CARBAMAZEPINE
     Dosage: 1200 MG
  3. LORAZEPAM [Concomitant]
     Active Substance: LORAZEPAM
     Dosage: 6 MG
     Route: 048

REACTIONS (1)
  - Mania [Unknown]
